FAERS Safety Report 15215931 (Version 1)
Quarter: 2018Q3

REPORT INFORMATION
  Report Type: Spontaneous
  Country: JP (occurrence: JP)
  Receive Date: 20180730
  Receipt Date: 20180730
  Transmission Date: 20181010
  Serious: Yes (Hospitalization)
  Sender: FDA-Public Use
  Company Number: JP-PFIZER INC-2018297496

PATIENT
  Age: 73 Year
  Sex: Female

DRUGS (4)
  1. SALAZOSULFAPYRIDINE [Concomitant]
     Active Substance: SULFASALAZINE
     Indication: RHEUMATOID ARTHRITIS
     Dosage: 1000 MG, DAILY
     Route: 048
  2. LEUCOVORIN. [Suspect]
     Active Substance: LEUCOVORIN
  3. RHEUMATREX [Suspect]
     Active Substance: METHOTREXATE SODIUM
     Route: 048
  4. SIMPONI [Concomitant]
     Active Substance: GOLIMUMAB
     Indication: RHEUMATOID ARTHRITIS
     Dosage: 1000 MG, DAILY
     Route: 058

REACTIONS (3)
  - Anaemia [Unknown]
  - Pancytopenia [Unknown]
  - Hypercapnia [Unknown]

NARRATIVE: CASE EVENT DATE: 20180622
